FAERS Safety Report 7319288-2 (Version None)
Quarter: 2011Q1

REPORT INFORMATION
  Report Type: 
  Country: None (occurrence: None)
  Receive Date: 20110228
  Receipt Date: 20100113
  Transmission Date: 20110831
  Serious: No
  Sender: FDA-Public Use
  Company Number: A0839225A

PATIENT
  Sex: Female

DRUGS (1)
  1. LAMICTAL [Suspect]
     Indication: INJURY
     Route: 048

REACTIONS (2)
  - EYELID OEDEMA [None]
  - ERYTHEMA OF EYELID [None]
